FAERS Safety Report 9705410 (Version 2)
Quarter: 2013Q4

REPORT INFORMATION
  Report Type: Report from Study
  Country: US (occurrence: US)
  Receive Date: 20131122
  Receipt Date: 20131129
  Transmission Date: 20140711
  Serious: Yes (Other)
  Sender: FDA-Public Use
  Company Number: US-ASTRAZENECA-2013SE85481

PATIENT
  Age: 19343 Day
  Sex: Female
  Weight: 96.1 kg

DRUGS (9)
  1. NAPROXEN [Suspect]
     Indication: OSTEOARTHRITIS
     Route: 048
     Dates: start: 20130312, end: 20130924
  2. NEXIUM [Suspect]
     Indication: GASTRITIS PROPHYLAXIS
     Route: 048
     Dates: start: 20110312, end: 20130924
  3. CYMBALTA [Concomitant]
     Indication: DEPRESSION
     Route: 048
     Dates: start: 200709
  4. FLOVENT [Concomitant]
     Indication: CHRONIC OBSTRUCTIVE PULMONARY DISEASE
     Dosage: 2 PUFF TWICE DAILY
     Route: 048
     Dates: start: 201001
  5. QVAR [Concomitant]
     Indication: CHRONIC OBSTRUCTIVE PULMONARY DISEASE
     Route: 055
     Dates: start: 20130815
  6. QVAR [Concomitant]
     Indication: ASTHMA
     Route: 055
     Dates: start: 20130815
  7. OPANA [Concomitant]
     Indication: PAIN
     Route: 048
  8. PERCOCET [Concomitant]
     Indication: PAIN
     Dosage: 5/325 MG AS NEEDED
     Route: 048
  9. SPIRIVA [Concomitant]
     Indication: ASTHMA

REACTIONS (1)
  - Invasive ductal breast carcinoma [Unknown]
